FAERS Safety Report 9031128 (Version 1)
Quarter: 2013Q1

REPORT INFORMATION
  Report Type: Other
  Country: IT (occurrence: IT)
  Receive Date: 20130123
  Receipt Date: 20130123
  Transmission Date: 20140127
  Serious: Yes (Hospitalization)
  Sender: FDA-Public Use
  Company Number: IT-WATSON-2013-00912

PATIENT
  Age: 65 Year
  Sex: Male

DRUGS (8)
  1. SIMVASTATIN (UNKNOWN) [Suspect]
     Indication: DYSLIPIDAEMIA
     Dosage: 40 MG, DAILY
     Route: 048
     Dates: start: 19800101, end: 20121218
  2. CARDIOASPIRIN [Concomitant]
     Indication: PRODUCT USED FOR UNKNOWN INDICATION
     Dosage: UNK
     Route: 065
  3. ESAPENT [Concomitant]
     Indication: PRODUCT USED FOR UNKNOWN INDICATION
     Dosage: UNK
     Route: 065
  4. GLIBENCLAMIDE W/METFORMIN [Concomitant]
     Indication: TYPE 2 DIABETES MELLITUS
     Dosage: 5/500MG
     Route: 065
     Dates: start: 19800101, end: 20121219
  5. LOSARTAN/HYDROCHLOROTHIAZIDE ALMUS [Concomitant]
     Indication: HYPERTENSION
     Dosage: 100/25MG
     Route: 065
  6. INSULIN GLULISINE [Concomitant]
     Indication: TYPE 2 DIABETES MELLITUS
     Dosage: UNK
     Route: 065
  7. INSULIN GLARGINE [Concomitant]
     Indication: TYPE 2 DIABETES MELLITUS
     Dosage: UNK
     Route: 065
  8. NITROGLYCERIN [Concomitant]
     Indication: ISCHAEMIC CARDIOMYOPATHY
     Dosage: UNK
     Route: 065

REACTIONS (4)
  - Hepatitis toxic [Recovering/Resolving]
  - Renal failure acute [Recovering/Resolving]
  - Rhabdomyolysis [Recovering/Resolving]
  - Myalgia [Recovering/Resolving]
